FAERS Safety Report 8400531-3 (Version None)
Quarter: 2012Q2

REPORT INFORMATION
  Report Type: 
  Country: None (occurrence: None)
  Receive Date: 20120531
  Receipt Date: 20120522
  Transmission Date: 20120825
  Serious: Yes (Other)
  Sender: FDA-Public Use
  Company Number: CA-ABBOTT-12P-028-0934634-00

PATIENT
  Sex: Male
  Weight: 59.928 kg

DRUGS (1)
  1. LUPRON DEPOT [Suspect]
     Indication: PROSTATE CANCER
     Dates: start: 20100920, end: 20120510

REACTIONS (4)
  - PNEUMONIA [None]
  - MEDIASTINAL DISORDER [None]
  - LUNG NEOPLASM MALIGNANT [None]
  - LUNG NEOPLASM [None]
